FAERS Safety Report 5734860-9 (Version None)
Quarter: 2008Q2

REPORT INFORMATION
  Report Type: 
  Country: None (occurrence: None)
  Receive Date: 20080512
  Receipt Date: 20080509
  Transmission Date: 20081010
  Serious: Yes (Life-Threatening, Hospitalization, Other)
  Sender: FDA-Public Use
  Company Number: A0722891A

PATIENT
  Age: 84 Year
  Sex: Female
  Weight: 67.3 kg

DRUGS (12)
  1. VALTREX [Suspect]
     Dosage: 1G THREE TIMES PER DAY
     Route: 048
     Dates: start: 20080406, end: 20080411
  2. DULCOLAX [Concomitant]
     Indication: CONSTIPATION
  3. PROTONIX [Concomitant]
     Dosage: 40MG IN THE MORNING
  4. CENTRUM [Concomitant]
  5. NORVASC [Concomitant]
     Indication: HYPERTENSION
  6. ZOLOFT [Concomitant]
     Indication: DEPRESSION
     Dosage: 50MG AT NIGHT
  7. BROMOCRIPTINE MESYLATE [Concomitant]
     Indication: HYPERPITUITARISM
     Dosage: 2.5MG IN THE MORNING
     Route: 048
  8. TYLENOL [Concomitant]
  9. LIPITOR [Concomitant]
  10. ASPIRIN [Concomitant]
  11. NEXIUM [Concomitant]
     Dosage: 40MG PER DAY
     Route: 048
  12. ATACAND [Concomitant]
     Dosage: 32MG PER DAY
     Route: 048

REACTIONS (14)
  - ASTHENIA [None]
  - BLOOD CREATININE INCREASED [None]
  - BLOOD MAGNESIUM DECREASED [None]
  - BLOOD POTASSIUM INCREASED [None]
  - BLOOD PRESSURE INCREASED [None]
  - BLOOD UREA INCREASED [None]
  - CORONARY ARTERY DISEASE [None]
  - DIZZINESS [None]
  - HYPERTONIC BLADDER [None]
  - MALAISE [None]
  - MENTAL STATUS CHANGES [None]
  - PERCUTANEOUS CORONARY INTERVENTION [None]
  - RENAL FAILURE ACUTE [None]
  - SINUS BRADYCARDIA [None]
